FAERS Safety Report 18622824 (Version 6)
Quarter: 2021Q2

REPORT INFORMATION
  Report Type: Spontaneous
  Country: BR (occurrence: BR)
  Receive Date: 20201216
  Receipt Date: 20210412
  Transmission Date: 20210717
  Serious: Yes (Disabling, Other)
  Sender: FDA-Public Use
  Company Number: BR-SA-2020SA353073

PATIENT
  Age: 21 Year
  Sex: Male
  Weight: 92 kg

DRUGS (2)
  1. DUPIXENT [Suspect]
     Active Substance: DUPILUMAB
     Indication: DERMATITIS ATOPIC
     Dosage: UNK
     Dates: start: 20201007
  2. CYCLOSPORINE. [Concomitant]
     Active Substance: CYCLOSPORINE
     Dosage: 200 MG, QD
     Dates: start: 20191201

REACTIONS (29)
  - Condition aggravated [Recovering/Resolving]
  - Dermatitis atopic [Unknown]
  - Skin discolouration [Recovering/Resolving]
  - Fall [Recovering/Resolving]
  - Peripheral embolism [Recovering/Resolving]
  - Infection [Recovering/Resolving]
  - Adrenal insufficiency [Recovering/Resolving]
  - Generalised oedema [Recovered/Resolved]
  - Pigmentation disorder [Unknown]
  - Hypotension [Recovered/Resolved]
  - Rash [Unknown]
  - Micturition disorder [Recovering/Resolving]
  - Dehydration [Recovering/Resolving]
  - Thyroxine decreased [Recovering/Resolving]
  - C-reactive protein increased [Recovering/Resolving]
  - Alagille syndrome [Recovering/Resolving]
  - Discharge [Recovering/Resolving]
  - Pain [Unknown]
  - Skin discolouration [Recovering/Resolving]
  - Pyrexia [Unknown]
  - Chills [Recovering/Resolving]
  - Blood thyroid stimulating hormone increased [Recovering/Resolving]
  - Thyroid function test abnormal [Recovering/Resolving]
  - Erythema [Unknown]
  - Bedridden [Recovered/Resolved]
  - Coronavirus infection [Recovering/Resolving]
  - Dermatitis exfoliative generalised [Recovering/Resolving]
  - Pain in extremity [Recovered/Resolved]
  - High density lipoprotein decreased [Recovering/Resolving]

NARRATIVE: CASE EVENT DATE: 2020
